FAERS Safety Report 8710754 (Version 5)
Quarter: 2012Q4

REPORT INFORMATION
  Report Type: 
  Country: US (occurrence: US)
  Receive Date: 20120807
  Receipt Date: 20121002
  Transmission Date: 20130627
  Serious: Yes (Life-Threatening, Hospitalization, Disabling, Other)
  Sender: FDA-Public Use
  Company Number: US-009507513-1207USA005381

PATIENT
  Age: 24 Year
  Sex: Female
  Weight: 62.13 kg

DRUGS (7)
  1. IMPLANON [Suspect]
     Indication: CONTRACEPTION
     Dosage: UNK
     Route: 058
     Dates: start: 20110324, end: 20120813
  2. PEPCID [Concomitant]
     Dosage: 20 mg, qd
     Route: 048
  3. MELATONIN [Concomitant]
     Dosage: 3 mg, prn
     Route: 048
  4. VYVANSE [Concomitant]
     Dosage: 70 mg, UNK
  5. ADDERALL TABLETS [Concomitant]
     Dosage: 15 mg, UNK
  6. TRI-SPRINTEC [Concomitant]
  7. CIPRO [Concomitant]
     Dosage: 500 mg, UNK

REACTIONS (12)
  - Cerebrovascular accident [Recovered/Resolved]
  - Hypercoagulation [Unknown]
  - Dysphagia [Not Recovered/Not Resolved]
  - Vertebral artery thrombosis [Unknown]
  - Anxiety [Unknown]
  - Attention deficit/hyperactivity disorder [Not Recovered/Not Resolved]
  - Urinary retention [Recovered/Resolved]
  - Impaired self-care [Unknown]
  - Mobility decreased [Not Recovered/Not Resolved]
  - Cognitive disorder [Not Recovered/Not Resolved]
  - Fungal infection [Unknown]
  - Vocal cord paralysis [Unknown]
